FAERS Safety Report 23277219 (Version 1)
Quarter: 2023Q4

REPORT INFORMATION
  Report Type: Report from Study
  Country: US (occurrence: None)
  Receive Date: 20231208
  Receipt Date: 20231208
  Transmission Date: 20240109
  Serious: Yes (Hospitalization, Other)
  Sender: FDA-Public Use
  Company Number: 2023A273064

PATIENT
  Sex: Male
  Weight: 56.7 kg

DRUGS (12)
  1. CALQUENCE [Suspect]
     Active Substance: ACALABRUTINIB
     Indication: Lymphocytic leukaemia
     Route: 048
     Dates: start: 20231117
  2. UROXATRAL [Concomitant]
     Active Substance: ALFUZOSIN HYDROCHLORIDE
  3. KLONOPIN [Concomitant]
     Active Substance: CLONAZEPAM
  4. COLACE [Concomitant]
     Active Substance: DOCUSATE SODIUM
  5. TIKOSYN [Concomitant]
     Active Substance: DOFETILIDE
  6. LEXAPRO [Concomitant]
     Active Substance: ESCITALOPRAM OXALATE
  7. TAPAZOLE [Concomitant]
     Active Substance: METHIMAZOLE
  8. XARELTO [Concomitant]
     Active Substance: RIVAROXABAN
  9. SENNA [Concomitant]
     Active Substance: SENNA LEAF\SENNOSIDES\SENNOSIDES A AND B
  10. SACCHAROMYCES CEREVISIAE [Concomitant]
     Active Substance: SACCHAROMYCES CEREVISIAE
  11. FERROUS SULFATE [Concomitant]
     Active Substance: FERROUS SULFATE
  12. CIPROFLOXACIN [Concomitant]
     Active Substance: CIPROFLOXACIN

REACTIONS (4)
  - Hypotension [Recovering/Resolving]
  - Blood magnesium decreased [Recovering/Resolving]
  - Haemoglobin decreased [Recovering/Resolving]
  - Device leakage [Recovering/Resolving]
